FAERS Safety Report 8330470-8 (Version None)
Quarter: 2012Q2

REPORT INFORMATION
  Report Type: 
  Country: None (occurrence: None)
  Receive Date: 20120502
  Receipt Date: 20120419
  Transmission Date: 20120825
  Serious: Yes (Hospitalization)
  Sender: FDA-Public Use
  Company Number: FR-MYLANLABS-2012S1008572

PATIENT
  Age: 65 Year
  Sex: Male

DRUGS (3)
  1. METFORMIN HCL [Suspect]
     Route: 065
  2. ACARBOSE [Concomitant]
     Route: 065
  3. GLICLAZIDE [Concomitant]
     Route: 065

REACTIONS (5)
  - TOXICITY TO VARIOUS AGENTS [None]
  - LACTIC ACIDOSIS [None]
  - RENAL FAILURE ACUTE [None]
  - CARDIOMYOPATHY [None]
  - ACCIDENTAL OVERDOSE [None]
